FAERS Safety Report 9918008 (Version 2)
Quarter: 2014Q1

REPORT INFORMATION
  Report Type: Spontaneous
  Country: US (occurrence: US)
  Receive Date: 20140222
  Receipt Date: 20140222
  Transmission Date: 20141002
  Serious: Yes (Disabling)
  Sender: FDA-Public Use
  Company Number: US-GE HEALTHCARE MEDICAL DIAGNOSTICS-OSCN-PR-0709S-0365

PATIENT
  Sex: Male

DRUGS (6)
  1. OMNISCAN [Suspect]
     Indication: NEOPLASM
     Route: 042
     Dates: start: 20020816, end: 20020816
  2. OMNISCAN [Suspect]
     Indication: CEREBROVASCULAR ACCIDENT
     Route: 042
     Dates: start: 20050511, end: 20050511
  3. OMNISCAN [Suspect]
     Indication: BRAIN NEOPLASM
     Route: 042
     Dates: start: 20051202, end: 20051202
  4. OMNISCAN [Suspect]
     Indication: DYSARTHRIA
     Route: 042
     Dates: start: 20061006, end: 20061006
  5. OMNISCAN [Suspect]
     Route: 042
     Dates: start: 20061019, end: 20061019
  6. OMNISCAN [Suspect]
     Route: 042
     Dates: start: 20061115, end: 20061115

REACTIONS (1)
  - Nephrogenic systemic fibrosis [Not Recovered/Not Resolved]
